FAERS Safety Report 19933335 (Version 1)
Quarter: 2021Q4

REPORT INFORMATION
  Report Type: Spontaneous
  Country: US (occurrence: US)
  Receive Date: 20211007
  Receipt Date: 20211007
  Transmission Date: 20220303
  Serious: No
  Sender: FDA-Public Use
  Company Number: None

PATIENT

DRUGS (2)
  1. MEMANTINE [Suspect]
     Active Substance: MEMANTINE
  2. MEMANTINE [Suspect]
     Active Substance: MEMANTINE

REACTIONS (3)
  - Incorrect dose administered [None]
  - Product dispensing error [None]
  - Product label confusion [None]
